FAERS Safety Report 13268688 (Version 1)
Quarter: 2017Q1

REPORT INFORMATION
  Report Type: Spontaneous
  Country: US (occurrence: US)
  Receive Date: 20170224
  Receipt Date: 20170224
  Transmission Date: 20170428
  Serious: Yes (Hospitalization, Other)
  Sender: FDA-Public Use
  Company Number: US-JNJFOC-20170218139

PATIENT
  Age: 79 Year
  Sex: Male
  Weight: 101.15 kg

DRUGS (2)
  1. XARELTO [Suspect]
     Active Substance: RIVAROXABAN
     Indication: THROMBOSIS
     Route: 048
     Dates: start: 2011
  2. METAMUCIL [Concomitant]
     Active Substance: PLANTAGO SEED
     Route: 065

REACTIONS (6)
  - Bile duct stone [Recovered/Resolved]
  - Ileus paralytic [Recovered/Resolved]
  - Abnormal loss of weight [Recovered/Resolved]
  - Pancreatitis acute [Recovered/Resolved]
  - Gallbladder disorder [Recovered/Resolved]
  - Platelet count abnormal [Unknown]

NARRATIVE: CASE EVENT DATE: 201610
